FAERS Safety Report 13297639 (Version 4)
Quarter: 2018Q1

REPORT INFORMATION
  Report Type: Spontaneous
  Country: US (occurrence: US)
  Receive Date: 20170306
  Receipt Date: 20180110
  Transmission Date: 20180508
  Serious: No
  Sender: FDA-Public Use
  Company Number: US-PFIZER INC-2017092452

PATIENT
  Age: 71 Year
  Sex: Female
  Weight: 54 kg

DRUGS (4)
  1. REVATIO [Suspect]
     Active Substance: SILDENAFIL CITRATE
     Indication: LUNG DISORDER
     Dosage: 40 MG, 3X/DAY
     Route: 048
     Dates: start: 20130207
  2. REVATIO [Suspect]
     Active Substance: SILDENAFIL CITRATE
     Indication: PULMONARY HYPERTENSION
  3. OXYGEN. [Concomitant]
     Active Substance: OXYGEN
     Dosage: 24/7
  4. REVATIO [Suspect]
     Active Substance: SILDENAFIL CITRATE
     Indication: CARDIAC DISORDER
     Dosage: 20 MG, 3X/DAY
     Route: 048

REACTIONS (8)
  - Nasal congestion [Unknown]
  - Hypoacusis [Unknown]
  - Renal disorder [Unknown]
  - Disease progression [Not Recovered/Not Resolved]
  - Ear discomfort [Unknown]
  - Memory impairment [Unknown]
  - Product use issue [Unknown]
  - Hypersensitivity [Unknown]
